FAERS Safety Report 18133983 (Version 1)
Quarter: 2020Q3

REPORT INFORMATION
  Report Type: Spontaneous
  Country: US (occurrence: US)
  Receive Date: 20200807
  Receipt Date: 20200807
  Transmission Date: 20201103
  Serious: Yes (Hospitalization)
  Sender: FDA-Public Use
  Company Number: None

PATIENT
  Age: 68 Year
  Sex: Male

DRUGS (12)
  1. LANTUS [Concomitant]
     Active Substance: INSULIN GLARGINE
  2. TYVASO [Concomitant]
     Active Substance: TREPROSTINIL
  3. TADALAFIL 20MG TAB [Suspect]
     Active Substance: TADALAFIL
     Indication: PULMONARY ARTERIAL HYPERTENSION
     Route: 048
     Dates: start: 20191107
  4. AMBRISENTAN 10MG TAB [Suspect]
     Active Substance: AMBRISENTAN
     Indication: PULMONARY ARTERIAL HYPERTENSION
     Route: 048
     Dates: start: 20131121
  5. BACLOFEN. [Concomitant]
     Active Substance: BACLOFEN
  6. LISINOPRIL. [Concomitant]
     Active Substance: LISINOPRIL
  7. SPIRONOLACT [Concomitant]
     Active Substance: SPIRONOLACTONE
  8. FUROSEMIDE. [Concomitant]
     Active Substance: FUROSEMIDE
  9. RELION [Concomitant]
  10. FERROUS SULF [Concomitant]
     Active Substance: FERROUS SULFATE
  11. GLYBURIDE. [Concomitant]
     Active Substance: GLYBURIDE
  12. NOVOLIN 70/30 [Concomitant]
     Active Substance: INSULIN HUMAN

REACTIONS (1)
  - Arthropod bite [None]

NARRATIVE: CASE EVENT DATE: 202003
